FAERS Safety Report 11322962 (Version 1)
Quarter: 2015Q3

REPORT INFORMATION
  Report Type: Spontaneous
  Country: US (occurrence: US)
  Receive Date: 20150730
  Receipt Date: 20150730
  Transmission Date: 20151125
  Serious: Yes (Other)
  Sender: FDA-Public Use
  Company Number: PHEH2015US014346

PATIENT
  Sex: Female

DRUGS (2)
  1. EXEMESTANE. [Suspect]
     Active Substance: EXEMESTANE
     Indication: BREAST CANCER
     Route: 065
  2. AFINITOR [Suspect]
     Active Substance: EVEROLIMUS
     Indication: BREAST CANCER
     Route: 048

REACTIONS (4)
  - Pneumonitis [Recovering/Resolving]
  - Pyrexia [Unknown]
  - Dyspnoea [Unknown]
  - Cough [Unknown]

NARRATIVE: CASE EVENT DATE: 20150710
